FAERS Safety Report 8188790-6 (Version None)
Quarter: 2012Q1

REPORT INFORMATION
  Report Type: 
  Country: None (occurrence: None)
  Receive Date: 20120306
  Receipt Date: 20120229
  Transmission Date: 20120608
  Serious: Yes (Hospitalization, Other)
  Sender: FDA-Public Use
  Company Number: US-PFIZER INC-2012019971

PATIENT
  Sex: Male
  Weight: 127 kg

DRUGS (2)
  1. BENEFIX [Suspect]
     Indication: FACTOR IX DEFICIENCY
     Dosage: UNK, 3X/WEEK
     Route: 058
  2. BENEFIX [Suspect]
     Dosage: UNK

REACTIONS (3)
  - LEG AMPUTATION [None]
  - HEPATIC FAILURE [None]
  - ARTHRITIS INFECTIVE [None]
